FAERS Safety Report 15646732 (Version 1)
Quarter: 2018Q4

REPORT INFORMATION
  Report Type: Spontaneous
  Country: US (occurrence: US)
  Receive Date: 20181122
  Receipt Date: 20181122
  Transmission Date: 20190205
  Serious: Yes (Hospitalization, Other)
  Sender: FDA-Public Use
  Company Number: US-APOTEX-2018AP025257

PATIENT
  Age: 27 Year
  Sex: Male

DRUGS (6)
  1. ACETAMINOPHEN. [Suspect]
     Active Substance: ACETAMINOPHEN
     Indication: BACK PAIN
     Route: 065
  2. GUAIFENESIN AND DEXTROMETHORPHAN [Suspect]
     Active Substance: DEXTROMETHORPHAN\GUAIFENESIN
     Indication: BACK PAIN
  3. ACETAMINOPHEN. [Suspect]
     Active Substance: ACETAMINOPHEN
     Indication: DRUG ABUSE
  4. METHAMPHETAMINE                    /00069101/ [Suspect]
     Active Substance: METHAMPHETAMINE
     Indication: DRUG ABUSE
  5. METHAMPHETAMINE                    /00069101/ [Suspect]
     Active Substance: METHAMPHETAMINE
     Indication: BACK PAIN
     Dosage: UNK
     Route: 065
  6. GUAIFENESIN AND DEXTROMETHORPHAN [Suspect]
     Active Substance: DEXTROMETHORPHAN\GUAIFENESIN
     Indication: DRUG ABUSE

REACTIONS (6)
  - Toxicity to various agents [Unknown]
  - Abnormal behaviour [Recovering/Resolving]
  - Drug abuse [Unknown]
  - Metabolic acidosis [Recovered/Resolved]
  - Serotonin syndrome [Recovering/Resolving]
  - Hyperchloraemia [Recovered/Resolved]
